FAERS Safety Report 10223196 (Version 1)
Quarter: 2014Q2

REPORT INFORMATION
  Report Type: Spontaneous
  Country: US (occurrence: None)
  Receive Date: 20140605
  Receipt Date: 20140605
  Transmission Date: 20141212
  Serious: Yes (Hospitalization)
  Sender: FDA-Public Use
  Company Number: UNT-2014-001131

PATIENT
  Age: 81 Year
  Sex: Male
  Weight: 79.4 kg

DRUGS (2)
  1. REMODULIN (TREPOSTINIL SODIUM) INJECTION, 2.5MG/ML [Suspect]
     Indication: PULMONARY ARTERIAL HYPERTENSION
     Dosage: 0.041UG/KG/MIN, CONTINUING IV DRIP
     Route: 041
     Dates: start: 20120601
  2. ADCIRCA (TADALAFIL) [Concomitant]

REACTIONS (1)
  - Dyspnoea [None]
